FAERS Safety Report 22292246 (Version 1)
Quarter: 2023Q2

REPORT INFORMATION
  Report Type: Spontaneous
  Country: GB (occurrence: GB)
  Receive Date: 20230508
  Receipt Date: 20230508
  Transmission Date: 20230722
  Serious: Yes (Disabling)
  Sender: FDA-Public Use
  Company Number: None

PATIENT
  Age: 68 Year
  Sex: Female
  Weight: 103 kg

DRUGS (11)
  1. BEMPEDOIC ACID [Suspect]
     Active Substance: BEMPEDOIC ACID
     Indication: Ill-defined disorder
     Dosage: UNK
     Route: 065
     Dates: start: 20230426
  2. BEMPEDOIC ACID [Concomitant]
     Active Substance: BEMPEDOIC ACID
     Indication: Ill-defined disorder
     Dosage: UNK UNK, QD (TAKE ONE DAILY AS PER LIPID CLINIC ADVICE)
     Route: 065
     Dates: start: 20220509, end: 20230426
  3. CITALOPRAM [Concomitant]
     Active Substance: CITALOPRAM HYDROBROMIDE
     Indication: Ill-defined disorder
     Dosage: 1 DF, QD (ONE TABLET TO BE TAKEN ONCE A DAY FOR MOOD)
     Route: 065
     Dates: start: 20230419
  4. COCODAMOL [Concomitant]
     Active Substance: ACETAMINOPHEN\CODEINE PHOSPHATE
     Indication: Ill-defined disorder
     Dosage: UNK (ONE - TWO TABLETS TO BE TAKEN UPTO A MAXIMUM OF ...)
     Route: 065
     Dates: start: 20230118
  5. METHYLPREDNISOLONE ACETATE [Concomitant]
     Active Substance: METHYLPREDNISOLONE ACETATE
     Indication: Ill-defined disorder
     Dosage: UNK (USE AS DIRECTED)
     Route: 065
     Dates: start: 20230419, end: 20230420
  6. FLUTICASONE PROPIONATE [Concomitant]
     Active Substance: FLUTICASONE PROPIONATE
     Indication: Ill-defined disorder
     Dosage: UNK (USE 1-2 TIMES/DAY)
     Route: 065
     Dates: start: 20230426
  7. POTASSIUM BICARBONATE\SODIUM ALGINATE [Concomitant]
     Active Substance: POTASSIUM BICARBONATE\SODIUM ALGINATE
     Indication: Ill-defined disorder
     Dosage: UNK (5ML - 10ML 4 TIMES/DAY WHEN REQUIRED FOR ACID)
     Route: 065
     Dates: start: 20230327, end: 20230410
  8. MOXONIDINE [Concomitant]
     Active Substance: MOXONIDINE
     Indication: Ill-defined disorder
     Dosage: 1 DF, QD (ONE TABLET TO BE TAKEN ONCE A DAY IN THE MORNINING)
     Route: 065
     Dates: start: 20230426
  9. NAPROXEN [Concomitant]
     Active Substance: NAPROXEN
     Indication: Ill-defined disorder
     Dosage: 1 DF, BID (ONE TABLET TO BE TAKEN TWICE A DAY WHEN REQUIRED)
     Route: 065
     Dates: start: 20230118, end: 20230327
  10. NITROFURANTOIN [Concomitant]
     Active Substance: NITROFURANTOIN
     Indication: Ill-defined disorder
     Dosage: 1 DF, BID (ONE CAPSULE TO BE TAKEN TWICE A DAY FOR SEVEN DAYS)
     Route: 065
     Dates: start: 20230327, end: 20230403
  11. OMEPRAZOLE [Concomitant]
     Active Substance: OMEPRAZOLE
     Indication: Dyspepsia
     Dosage: UNK UNK, QD (ONCE OR TWO CAPSULES A DAY FOR ACID INDIGESTION)
     Route: 065
     Dates: start: 20220216

REACTIONS (3)
  - Malaise [Recovered/Resolved]
  - Myalgia [Recovered/Resolved]
  - Feeling abnormal [Recovered/Resolved]

NARRATIVE: CASE EVENT DATE: 20230426
